FAERS Safety Report 10050782 (Version 1)
Quarter: 2014Q2

REPORT INFORMATION
  Report Type: Spontaneous
  Country: US (occurrence: US)
  Receive Date: 20140401
  Receipt Date: 20140401
  Transmission Date: 20141212
  Serious: No
  Sender: FDA-Public Use
  Company Number: US-ASTRAZENECA-2013SE68793

PATIENT
  Age: 63 Year
  Sex: Female
  Weight: 64.9 kg

DRUGS (15)
  1. NEXIUM [Suspect]
     Indication: GASTROOESOPHAGEAL REFLUX DISEASE
     Route: 048
     Dates: start: 2001
  2. PRILOSEC [Suspect]
     Indication: GASTROOESOPHAGEAL REFLUX DISEASE
     Dosage: DAILY
     Route: 048
     Dates: start: 1990, end: 2001
  3. PANTOPRAZOLE [Concomitant]
     Indication: GASTROOESOPHAGEAL REFLUX DISEASE
  4. PREMPRO [Concomitant]
     Indication: HORMONE THERAPY
  5. ACYCLOVIR [Concomitant]
     Route: 048
     Dates: start: 1990
  6. TRIAMTERENE 37.5/25 [Concomitant]
     Indication: VERTIGO
     Route: 048
     Dates: start: 2012
  7. BABY ASPIRIN [Concomitant]
     Indication: CARDIAC DISORDER
     Route: 048
     Dates: start: 2010
  8. ALLEGRA OTC GENERIC [Concomitant]
     Indication: MULTIPLE ALLERGIES
     Route: 048
  9. PSUEDOEPHEDRINE OTC GENERIC [Concomitant]
     Indication: MULTIPLE ALLERGIES
     Route: 048
  10. CALTRATE 600 PLUSE 3D [Concomitant]
  11. FLINTSTONE COMPLETE [Concomitant]
  12. SUPER B COMPLEX [Concomitant]
  13. FLAXSEED [Concomitant]
  14. FISH OIL [Concomitant]
  15. D3 [Concomitant]

REACTIONS (6)
  - Body height decreased [Unknown]
  - Osteoporosis [Unknown]
  - Gastrooesophageal reflux disease [Unknown]
  - Nausea [Unknown]
  - Vertigo [Unknown]
  - Intentional product misuse [Unknown]
